FAERS Safety Report 13892432 (Version 1)
Quarter: 2017Q3

REPORT INFORMATION
  Report Type: Spontaneous
  Country: US (occurrence: US)
  Receive Date: 20170822
  Receipt Date: 20170822
  Transmission Date: 20171127
  Serious: Yes (Hospitalization)
  Sender: FDA-Public Use
  Company Number: US-ROCHE-731925

PATIENT
  Age: 86 Year
  Sex: Female
  Weight: 54 kg

DRUGS (8)
  1. OSCAL [Concomitant]
     Active Substance: CALCIUM CARBONATE
     Route: 048
  2. ACTEMRA [Suspect]
     Active Substance: TOCILIZUMAB
     Indication: RHEUMATOID ARTHRITIS
     Dosage: FORM: INFUSION
     Route: 042
     Dates: start: 20100802, end: 20100802
  3. ACTEMRA [Suspect]
     Active Substance: TOCILIZUMAB
     Route: 042
     Dates: start: 20100830, end: 20100830
  4. ACTEMRA [Suspect]
     Active Substance: TOCILIZUMAB
     Route: 042
     Dates: start: 20100928, end: 20100928
  5. TYLENOL EXTRA STRENGTH [Concomitant]
     Active Substance: ACETAMINOPHEN
     Dosage: DOSAGE REGIMEN: 1 TABLET AS NEEDED
     Route: 065
  6. FORTICAL NASAL SPRAY [Concomitant]
     Dosage: ^DOSAGE REGIMEN: ^1 SPRAY IN ALTERNATING NOSTRILS DAILY^
     Route: 065
  7. AMBIEN [Concomitant]
     Active Substance: ZOLPIDEM TARTRATE
     Dosage: FREQUENCY: ^1 Q HS PRN^
     Route: 048
  8. SYNTHROID [Concomitant]
     Active Substance: LEVOTHYROXINE SODIUM
     Route: 065

REACTIONS (14)
  - Hypoaesthesia [Unknown]
  - Pallor [Unknown]
  - Nausea [Recovering/Resolving]
  - Dizziness [Unknown]
  - Vomiting [Recovering/Resolving]
  - Mental status changes [Recovering/Resolving]
  - Hypotension [Recovering/Resolving]
  - Confusional state [Unknown]
  - Vision blurred [Recovering/Resolving]
  - Loss of consciousness [Unknown]
  - Hyperhidrosis [Unknown]
  - Syncope [Recovering/Resolving]
  - Pruritus [Unknown]
  - Restlessness [Unknown]

NARRATIVE: CASE EVENT DATE: 20100928
